FAERS Safety Report 11230783 (Version 1)
Quarter: 2015Q2

REPORT INFORMATION
  Report Type: Spontaneous
  Country: GB (occurrence: None)
  Receive Date: 20150629
  Receipt Date: 20150629
  Transmission Date: 20150821
  Serious: Yes (Other)
  Sender: FDA-Public Use
  Company Number: None

PATIENT
  Age: 28 Year
  Sex: Female
  Weight: 3.18 kg

DRUGS (3)
  1. TOPIRAMATE 25 GRAMS [Suspect]
     Active Substance: TOPIRAMATE
     Indication: MIGRAINE
     Dosage: 1
     Route: 048
     Dates: start: 20150606, end: 20150622
  2. CANNABIS [Suspect]
     Active Substance: CANNABIS SATIVA SUBSP. INDICA TOP
  3. SLEEPING TABLETS (Z) [Concomitant]

REACTIONS (6)
  - Thinking abnormal [None]
  - Heart rate decreased [None]
  - Hypervigilance [None]
  - Panic attack [None]
  - Anxiety [None]
  - Confusional state [None]

NARRATIVE: CASE EVENT DATE: 20150622
